FAERS Safety Report 16531301 (Version 1)
Quarter: 2019Q3

REPORT INFORMATION
  Report Type: Spontaneous
  Country: US (occurrence: US)
  Receive Date: 20190523
  Receipt Date: 20190523
  Transmission Date: 20191004
  Serious: No
  Sender: FDA-Public Use
  Company Number: None

PATIENT
  Age: 55 Year
  Sex: Female

DRUGS (1)
  1. BUPRENORPHINE TD PATCH 1^S 20MCG [Suspect]
     Active Substance: BUPRENORPHINE
     Route: 061
     Dates: start: 201903, end: 201905

REACTIONS (2)
  - Drug ineffective [None]
  - Product adhesion issue [None]

NARRATIVE: CASE EVENT DATE: 20190514
